FAERS Safety Report 5832122-2 (Version None)
Quarter: 2008Q3

REPORT INFORMATION
  Report Type: 
  Country: None (occurrence: None)
  Receive Date: 20080731
  Receipt Date: 20080731
  Transmission Date: 20090109
  Serious: No
  Sender: FDA-Public Use
  Company Number: None

PATIENT
  Age: 26 Year
  Sex: Female
  Weight: 108.8633 kg

DRUGS (1)
  1. BUDEPRION XL  150MG  DON'T KNOW [Suspect]
     Indication: POSTPARTUM DEPRESSION
     Dosage: 150MG ONCE A DAY PO
     Route: 048
     Dates: start: 20080703, end: 20080729

REACTIONS (9)
  - ANGER [None]
  - ANXIETY [None]
  - DEPRESSION [None]
  - DIZZINESS [None]
  - FEELING ABNORMAL [None]
  - HALLUCINATION, VISUAL [None]
  - HEADACHE [None]
  - NIGHTMARE [None]
  - PHARMACEUTICAL PRODUCT COMPLAINT [None]
